FAERS Safety Report 5158018-X (Version None)
Quarter: 2006Q4

REPORT INFORMATION
  Report Type: 
  Country: None (occurrence: None)
  Receive Date: 20061116
  Receipt Date: 20061031
  Transmission Date: 20070319
  Serious: Yes (Death)
  Sender: FDA-Public Use
  Company Number: L06-USA-04699-61

PATIENT
  Age: 42 Year

DRUGS (3)
  1. DILTIAZEM [Suspect]
  2. QUETIAPINE FUMARATE [Suspect]
  3. ZALEPLON [Suspect]

REACTIONS (2)
  - COMPLETED SUICIDE [None]
  - MULTIPLE DRUG OVERDOSE INTENTIONAL [None]
